FAERS Safety Report 12241587 (Version 1)
Quarter: 2016Q2

REPORT INFORMATION
  Report Type: Spontaneous
  Country: US (occurrence: None)
  Receive Date: 20160405
  Receipt Date: 20160405
  Transmission Date: 20160815
  Serious: Yes (Other)
  Sender: FDA-Public Use
  Company Number: None

PATIENT
  Age: 72 Year
  Sex: Female

DRUGS (1)
  1. LATANOPROST, 0.005 % [Suspect]
     Active Substance: LATANOPROST
     Indication: GLAUCOMA
     Dosage: 7.5 OUNCE (S) AT BEDTIME INTO THE EYE
     Route: 031
     Dates: start: 20160223, end: 20160331

REACTIONS (3)
  - Vision blurred [None]
  - Intraocular pressure increased [None]
  - Eye inflammation [None]

NARRATIVE: CASE EVENT DATE: 20160223
